FAERS Safety Report 5225001-5 (Version None)
Quarter: 2007Q1

REPORT INFORMATION
  Report Type: 
  Country: None (occurrence: None)
  Receive Date: 20070126
  Receipt Date: 20070115
  Transmission Date: 20070707
  Serious: Yes (Hospitalization)
  Sender: FDA-Public Use
  Company Number: HQWYE771718JAN07

PATIENT
  Age: 57 Year
  Sex: Female

DRUGS (2)
  1. EFFEXOR [Suspect]
     Dosage: OVERDOSE AMOUNT 1500 MG
     Dates: start: 19990101, end: 19990101
  2. MEPROBAMATE [Suspect]
     Dosage: OVERDOSE AMOUNT ^1200^
     Dates: start: 19990101, end: 19990101

REACTIONS (5)
  - COMA [None]
  - HYPOTENSION [None]
  - LIFE SUPPORT [None]
  - MULTIPLE DRUG OVERDOSE [None]
  - PNEUMONIA ASPIRATION [None]
